FAERS Safety Report 10564613 (Version 1)
Quarter: 2014Q4

REPORT INFORMATION
  Report Type: Spontaneous
  Country: US (occurrence: US)
  Receive Date: 20141104
  Receipt Date: 20141104
  Transmission Date: 20150529
  Serious: No
  Sender: FDA-Public Use
  Company Number: US-MALLINCKRODT-T201402804

PATIENT
  Sex: Female

DRUGS (1)
  1. FENTANYL CITRATE. [Suspect]
     Active Substance: FENTANYL CITRATE
     Indication: TRIGEMINAL NEURALGIA
     Dosage: 1200 ?G, ONE EVERY 1-2 HOURS (12-13 LOZENGES QD)
     Route: 048

REACTIONS (1)
  - Off label use [Not Recovered/Not Resolved]
